FAERS Safety Report 7736169-0 (Version None)
Quarter: 2011Q3

REPORT INFORMATION
  Report Type: 
  Country: None (occurrence: None)
  Receive Date: 20110817
  Receipt Date: 20101109
  Transmission Date: 20111222
  Serious: Yes (Hospitalization)
  Sender: FDA-Public Use
  Company Number: 20096721

PATIENT
  Sex: Male

DRUGS (1)
  1. LIORESAL [Suspect]
     Indication: MUSCLE SPASTICITY
     Dosage: 305.2 MCG, DAILY, INTRATHECAL
     Route: 037

REACTIONS (5)
  - DRUG EFFECT DECREASED [None]
  - HOSPITALISATION [None]
  - DRUG INEFFECTIVE [None]
  - HYPERTONIA [None]
  - MUSCLE SPASTICITY [None]
